FAERS Safety Report 10653502 (Version 3)
Quarter: 2015Q4

REPORT INFORMATION
  Report Type: Report from Study
  Country: CA (occurrence: CA)
  Receive Date: 20141216
  Receipt Date: 20151209
  Transmission Date: 20160304
  Serious: Yes (Other)
  Sender: FDA-Public Use
  Company Number: CA-ROCHE-1500293

PATIENT
  Age: 59 Year
  Sex: Female

DRUGS (11)
  1. METHOTREXATE [Concomitant]
     Active Substance: METHOTREXATE
  2. FLEXERIL (CANADA) [Concomitant]
  3. CODEINE [Concomitant]
     Active Substance: CODEINE
  4. FOLIC ACID. [Concomitant]
     Active Substance: FOLIC ACID
  5. PLAQUENIL [Concomitant]
     Active Substance: HYDROXYCHLOROQUINE SULFATE
  6. TECTA [Concomitant]
     Active Substance: PANTOPRAZOLE MAGNESIUM
  7. ACTEMRA [Suspect]
     Active Substance: TOCILIZUMAB
     Indication: RHEUMATOID ARTHRITIS
     Dosage: EVERY OTHER WEEK
     Route: 058
     Dates: start: 201411
  8. LYRICA [Concomitant]
     Active Substance: PREGABALIN
  9. MELOXICAM. [Concomitant]
     Active Substance: MELOXICAM
  10. EFFEXOR [Concomitant]
     Active Substance: VENLAFAXINE HYDROCHLORIDE
  11. ELAVIL [Concomitant]
     Active Substance: AMITRIPTYLINE HYDROCHLORIDE

REACTIONS (3)
  - Fibromyalgia [Unknown]
  - Fatigue [Recovered/Resolved]
  - Nausea [Recovered/Resolved]

NARRATIVE: CASE EVENT DATE: 201411
